FAERS Safety Report 24007269 (Version 1)
Quarter: 2024Q2

REPORT INFORMATION
  Report Type: Report from Study
  Country: AU (occurrence: AU)
  Receive Date: 20240624
  Receipt Date: 20240624
  Transmission Date: 20240715
  Serious: Yes (Other)
  Sender: FDA-Public Use
  Company Number: AU-ABBVIE-5807920

PATIENT
  Sex: Male

DRUGS (1)
  1. HUMIRA [Suspect]
     Active Substance: ADALIMUMAB
     Indication: Psoriatic arthropathy
     Route: 058
     Dates: start: 2023

REACTIONS (7)
  - Tumour marker increased [Unknown]
  - Skin infection [Unknown]
  - Herpes zoster [Unknown]
  - Body temperature abnormal [Unknown]
  - Abnormal dreams [Unknown]
  - Headache [Unknown]
  - Diverticulitis [Unknown]
